FAERS Safety Report 9708949 (Version 1)
Quarter: 2013Q4

REPORT INFORMATION
  Report Type: Spontaneous
  Country: IT (occurrence: IT)
  Receive Date: 20131125
  Receipt Date: 20131125
  Transmission Date: 20140711
  Serious: Yes (Other)
  Sender: FDA-Public Use
  Company Number: IT-ACTAVIS-2013-20980

PATIENT
  Age: 75 Year
  Sex: Female

DRUGS (1)
  1. LETROZOLE (UNKNOWN) [Suspect]
     Indication: ADJUVANT THERAPY
     Dosage: UNK
     Route: 065

REACTIONS (1)
  - Sjogren^s syndrome [Unknown]
